FAERS Safety Report 6613622-4 (Version None)
Quarter: 2010Q1

REPORT INFORMATION
  Report Type: 
  Country: None (occurrence: None)
  Receive Date: 20100225
  Receipt Date: 20100212
  Transmission Date: 20100710
  Serious: Yes (Death, Hospitalization)
  Sender: FDA-Public Use
  Company Number: 007385

PATIENT
  Age: 40 Year
  Sex: Female

DRUGS (3)
  1. PREDNISOLONE [Suspect]
     Indication: SYSTEMIC LUPUS ERYTHEMATOSUS
     Dosage: 10 MG DAILY
  2. AZATHIOPRINE [Suspect]
     Indication: SYSTEMIC LUPUS ERYTHEMATOSUS
  3. CYCLOPHOSPHAMIDE [Suspect]
     Indication: SYSTEMIC LUPUS ERYTHEMATOSUS

REACTIONS (3)
  - PERITONITIS SCLEROSING [None]
  - SEPSIS [None]
  - STAPHYLOCOCCAL OSTEOMYELITIS [None]
